FAERS Safety Report 7509427-2 (Version None)
Quarter: 2011Q2

REPORT INFORMATION
  Report Type: 
  Country: None (occurrence: None)
  Receive Date: 20110527
  Receipt Date: 20110518
  Transmission Date: 20111010
  Serious: Yes (Life-Threatening, Hospitalization, Other)
  Sender: FDA-Public Use
  Company Number: FR-ROCHE-676173

PATIENT
  Sex: Male
  Weight: 100 kg

DRUGS (5)
  1. METHOXY POLYETHYLENE GLYCOL-EPOETIN BETA [Suspect]
     Dosage: 1 INJECTION/1MONTH
     Route: 058
     Dates: start: 20091008
  2. METHOXY POLYETHYLENE GLYCOL-EPOETIN BETA [Suspect]
     Dosage: 1 INJECTION/2WEEKS
     Route: 058
     Dates: start: 20091123
  3. METHOXY POLYETHYLENE GLYCOL-EPOETIN BETA [Suspect]
     Dosage: 1 INJECTION/2WEEKS
     Route: 058
     Dates: start: 20091208
  4. METHOXY POLYETHYLENE GLYCOL-EPOETIN BETA [Suspect]
     Dosage: 1 INJECTION/2WEEKS
     Route: 058
     Dates: start: 20091109
  5. METHOXY POLYETHYLENE GLYCOL-EPOETIN BETA [Suspect]
     Dosage: 1 INJECTION/1MONTH
     Route: 058
     Dates: start: 20090909

REACTIONS (2)
  - MANTLE CELL LYMPHOMA [None]
  - THROMBOCYTOPENIA [None]
